FAERS Safety Report 18458950 (Version 6)
Quarter: 2022Q2

REPORT INFORMATION
  Report Type: Report from Study
  Country: US (occurrence: US)
  Receive Date: 20201103
  Receipt Date: 20220608
  Transmission Date: 20220721
  Serious: Yes (Hospitalization, Other)
  Sender: FDA-Public Use
  Company Number: US-TAKEDA-2020TUS044745

PATIENT
  Age: 63 Year
  Sex: Female

DRUGS (1)
  1. HUMAN IMMUNOGLOBULIN G [Suspect]
     Active Substance: HUMAN IMMUNOGLOBULIN G
     Indication: Primary immunodeficiency syndrome
     Dosage: UNK
     Route: 065

REACTIONS (20)
  - Fungal infection [Unknown]
  - Respiratory tract infection [Unknown]
  - Chromaturia [Unknown]
  - Diarrhoea [Unknown]
  - Myalgia [Unknown]
  - Sinusitis [Unknown]
  - Insomnia [Unknown]
  - Escherichia test positive [Unknown]
  - Staphylococcus test positive [Unknown]
  - Mitral valve calcification [Unknown]
  - Osteoarthritis [Unknown]
  - Blood immunoglobulin G decreased [Unknown]
  - Joint dislocation [Unknown]
  - Dyspnoea [Unknown]
  - Ulcer [Recovering/Resolving]
  - Ear pain [Unknown]
  - Fatigue [Unknown]
  - Somnolence [Unknown]
  - Abdominal discomfort [Unknown]
  - Cystitis [Unknown]

NARRATIVE: CASE EVENT DATE: 20200709
